FAERS Safety Report 7381664-X (Version None)
Quarter: 2011Q1

REPORT INFORMATION
  Report Type: 
  Country: None (occurrence: None)
  Receive Date: 20110329
  Receipt Date: 20101014
  Transmission Date: 20110831
  Serious: Yes (Other)
  Sender: FDA-Public Use
  Company Number: US-BAYER-201017024NA

PATIENT
  Sex: Female
  Weight: 63.636 kg

DRUGS (9)
  1. ANTIBIOTICS [Concomitant]
  2. MOBIC [Concomitant]
  3. DELSYM [Concomitant]
     Indication: UPPER RESPIRATORY TRACT INFECTION
     Dosage: UNK
     Dates: start: 20081201
  4. NEXIUM [Concomitant]
  5. YAZ [Suspect]
     Indication: ORAL CONTRACEPTION
     Route: 048
     Dates: start: 20080801, end: 20090301
  6. MUCINEX [Concomitant]
     Indication: UPPER RESPIRATORY TRACT INFECTION
     Dosage: UNK
     Dates: start: 20081201
  7. ALEVE [Concomitant]
  8. PRILOSEC [Concomitant]
     Indication: EPIGASTRIC DISCOMFORT
  9. ADVIL LIQUI-GELS [Concomitant]

REACTIONS (3)
  - CHOLECYSTITIS CHRONIC [None]
  - ABDOMINAL PAIN UPPER [None]
  - CHOLELITHIASIS [None]
